FAERS Safety Report 5558087-9 (Version None)
Quarter: 2007Q4

REPORT INFORMATION
  Report Type: 
  Country: None (occurrence: None)
  Receive Date: 20071214
  Receipt Date: 20071210
  Transmission Date: 20080405
  Serious: Yes (Hospitalization, Other)
  Sender: FDA-Public Use
  Company Number: FR-BRISTOL-MYERS SQUIBB COMPANY-14009864

PATIENT
  Age: 40 Year
  Sex: Male

DRUGS (4)
  1. DIDANOSINE [Suspect]
     Indication: HIV INFECTION
  2. ATAZANAVIR [Suspect]
     Indication: HIV INFECTION
  3. LAMIVUDINE [Suspect]
  4. RITONAVIR [Suspect]

REACTIONS (3)
  - FANCONI SYNDROME [None]
  - LIPOATROPHY [None]
  - NEPHROGENIC DIABETES INSIPIDUS [None]
